FAERS Safety Report 16596641 (Version 10)
Quarter: 2020Q2

REPORT INFORMATION
  Report Type: Spontaneous
  Country: CA (occurrence: CA)
  Receive Date: 20190719
  Receipt Date: 20200629
  Transmission Date: 20200713
  Serious: Yes (Hospitalization)
  Sender: FDA-Public Use
  Company Number: CA-ROCHE-2354392

PATIENT
  Age: 18 Year
  Sex: Female

DRUGS (8)
  1. XOLAIR [Suspect]
     Active Substance: OMALIZUMAB
     Route: 058
     Dates: start: 20190806
  2. XOLAIR [Suspect]
     Active Substance: OMALIZUMAB
     Route: 058
     Dates: start: 20190416
  3. BENADRYL [Concomitant]
     Active Substance: DIPHENHYDRAMINE HYDROCHLORIDE
     Indication: PRODUCT USED FOR UNKNOWN INDICATION
     Route: 048
     Dates: start: 201805
  4. XOLAIR [Suspect]
     Active Substance: OMALIZUMAB
     Indication: CHRONIC SPONTANEOUS URTICARIA
     Route: 058
     Dates: start: 20181219
  5. XOLAIR [Suspect]
     Active Substance: OMALIZUMAB
     Route: 058
     Dates: start: 20191001
  6. XOLAIR [Suspect]
     Active Substance: OMALIZUMAB
     Route: 058
  7. XOLAIR [Suspect]
     Active Substance: OMALIZUMAB
     Route: 058
     Dates: start: 20190220
  8. XOLAIR [Suspect]
     Active Substance: OMALIZUMAB
     Route: 058
     Dates: start: 20190610

REACTIONS (24)
  - Perfume sensitivity [Unknown]
  - Fatigue [Unknown]
  - Urticaria [Not Recovered/Not Resolved]
  - Complex regional pain syndrome [Not Recovered/Not Resolved]
  - Rhinorrhoea [Not Recovered/Not Resolved]
  - Oropharyngeal discomfort [Unknown]
  - Pyrexia [Unknown]
  - Eye pruritus [Not Recovered/Not Resolved]
  - Product dose omission [Unknown]
  - Cystitis [Recovered/Resolved]
  - Injury [Unknown]
  - Nasal pruritus [Not Recovered/Not Resolved]
  - Blood pressure decreased [Unknown]
  - Throat tightness [Unknown]
  - Pyelonephritis [Unknown]
  - Urinary tract infection [Unknown]
  - Fall [Unknown]
  - Pharyngeal paraesthesia [Unknown]
  - Sneezing [Not Recovered/Not Resolved]
  - Wrist fracture [Unknown]
  - Impaired gastric emptying [Unknown]
  - Pruritus [Unknown]
  - Smoke sensitivity [Unknown]
  - Kidney infection [Unknown]

NARRATIVE: CASE EVENT DATE: 20181219
